FAERS Safety Report 17867562 (Version 1)
Quarter: 2020Q2

REPORT INFORMATION
  Report Type: Spontaneous
  Country: US (occurrence: US)
  Receive Date: 20200605
  Receipt Date: 20200605
  Transmission Date: 20200714
  Serious: Yes (Hospitalization)
  Sender: FDA-Public Use
  Company Number: US-BRISTOL-MYERS SQUIBB COMPANY-BMS-2020-043118

PATIENT
  Sex: Male
  Weight: 100 kg

DRUGS (2)
  1. OPDIVO [Suspect]
     Active Substance: NIVOLUMAB
     Indication: NEUROENDOCRINE CARCINOMA OF THE SKIN
     Dosage: 260 MILLIGRAM, Q3WK
     Route: 042
     Dates: start: 20200429
  2. YERVOY [Suspect]
     Active Substance: IPILIMUMAB
     Indication: NEUROENDOCRINE CARCINOMA OF THE SKIN
     Dosage: 90 MILLIGRAM, Q6WK
     Route: 042
     Dates: start: 20200429

REACTIONS (2)
  - Hospitalisation [Unknown]
  - Intentional product use issue [Unknown]
